FAERS Safety Report 9943856 (Version 2)
Quarter: 2015Q3

REPORT INFORMATION
  Report Type: Spontaneous
  Country: US (occurrence: US)
  Receive Date: 20140303
  Receipt Date: 20150730
  Transmission Date: 20151125
  Serious: No
  Sender: FDA-Public Use
  Company Number: US-GILEAD-2012-0050368

PATIENT
  Sex: Female

DRUGS (1)
  1. RANEXA [Suspect]
     Active Substance: RANOLAZINE
     Indication: PRODUCT USED FOR UNKNOWN INDICATION
     Dosage: 1000 MG, BID
     Route: 048

REACTIONS (7)
  - Urine odour abnormal [Unknown]
  - Dizziness [Unknown]
  - Product odour abnormal [Unknown]
  - Peripheral swelling [Unknown]
  - Dry mouth [Unknown]
  - Alopecia [Unknown]
  - Nausea [Unknown]
